FAERS Safety Report 7234017-9 (Version None)
Quarter: 2011Q1

REPORT INFORMATION
  Report Type: 
  Country: None (occurrence: None)
  Receive Date: 20110119
  Receipt Date: 20110106
  Transmission Date: 20110831
  Serious: Yes (Other)
  Sender: FDA-Public Use
  Company Number: US-CELGENEUS-163-21880-10101924

PATIENT
  Sex: Female

DRUGS (12)
  1. MULTI-VITAMINS [Concomitant]
     Route: 048
     Dates: start: 20070521
  2. ZOCOR [Concomitant]
     Route: 048
     Dates: start: 20100609
  3. REVLIMID [Suspect]
     Indication: MULTIPLE MYELOMA
     Route: 048
     Dates: start: 20090519
  4. DARVOCET-N 100 [Concomitant]
     Indication: PAIN
     Route: 048
     Dates: start: 20101027
  5. ATENOLOL [Concomitant]
     Route: 048
     Dates: start: 20091007
  6. POTASSIUM CHLORIDE [Concomitant]
     Route: 065
     Dates: start: 20091207
  7. FEOSOL [Concomitant]
     Route: 048
  8. ASPIRIN [Concomitant]
     Route: 048
     Dates: start: 20100217
  9. VITAMIN D [Concomitant]
     Dosage: 1000 UNITS
     Route: 048
     Dates: start: 20100217
  10. ZOMETA [Suspect]
     Route: 065
     Dates: start: 20070301
  11. DEXAMETHASONE [Concomitant]
     Indication: MULTIPLE MYELOMA
     Route: 065
  12. CALCIUM [Concomitant]
     Route: 048

REACTIONS (3)
  - OSTEONECROSIS OF JAW [None]
  - TOOTH ABSCESS [None]
  - WHITE BLOOD CELL COUNT DECREASED [None]
